FAERS Safety Report 25520889 (Version 1)
Quarter: 2025Q3

REPORT INFORMATION
  Report Type: Spontaneous
  Country: US (occurrence: US)
  Receive Date: 20250705
  Receipt Date: 20250705
  Transmission Date: 20251021
  Serious: Yes (Disabling)
  Sender: AUROBINDO
  Company Number: US-MLMSERVICE-20250611-PI540144-00163-1

PATIENT
  Age: 26 Year
  Sex: Female

DRUGS (4)
  1. GABAPENTIN [Suspect]
     Active Substance: GABAPENTIN
     Indication: Myalgia
     Dosage: 300 MILLIGRAM, 3 TIMES A DAY
     Route: 065
     Dates: start: 202008, end: 2020
  2. LEXAPRO [Concomitant]
     Active Substance: ESCITALOPRAM OXALATE
     Indication: Anxiety
     Dosage: 5 MILLIGRAM, ONCE A DAY
     Route: 065
     Dates: start: 202008, end: 2020
  3. SPIRONOLACTONE [Concomitant]
     Active Substance: SPIRONOLACTONE
     Indication: Acne
     Dosage: 100 MILLIGRAM, ONCE A DAY
     Route: 065
  4. PREVIFEM [Concomitant]
     Active Substance: ETHINYL ESTRADIOL\NORGESTIMATE
     Indication: Contraception
     Route: 065

REACTIONS (1)
  - Dysphemia [Recovering/Resolving]

NARRATIVE: CASE EVENT DATE: 20200101
